FAERS Safety Report 24801667 (Version 1)
Quarter: 2025Q1

REPORT INFORMATION
  Report Type: Spontaneous
  Country: NZ (occurrence: NZ)
  Receive Date: 20250102
  Receipt Date: 20250102
  Transmission Date: 20250409
  Serious: Yes (Hospitalization)
  Sender: AMERICAN REGENT
  Company Number: NZ-AMERICAN REGENT INC-2024004886

PATIENT
  Age: 66 Year
  Sex: Female

DRUGS (1)
  1. FERINJECT [Suspect]
     Active Substance: FERRIC CARBOXYMALTOSE
     Indication: Iron deficiency
     Route: 042
     Dates: start: 20210531, end: 20210531

REACTIONS (3)
  - Renal pain [Unknown]
  - Fatigue [Unknown]
  - Hypophosphataemia [Unknown]
